FAERS Safety Report 22332640 (Version 2)
Quarter: 2024Q1

REPORT INFORMATION
  Report Type: Spontaneous
  Country: GB (occurrence: GB)
  Receive Date: 20230517
  Receipt Date: 20240118
  Transmission Date: 20240410
  Serious: Yes (Hospitalization)
  Sender: FDA-Public Use
  Company Number: GB-ROCHE-3346849

PATIENT
  Age: 57 Year

DRUGS (14)
  1. DOXORUBICIN HYDROCHLORIDE [Suspect]
     Active Substance: DOXORUBICIN HYDROCHLORIDE
     Indication: Follicular lymphoma
     Dosage: ON 11/NOV/2022, LAST DOSE WAS ADMINISTERED
     Route: 065
     Dates: start: 20220729
  2. VINCRISTINE SULFATE [Suspect]
     Active Substance: VINCRISTINE SULFATE
     Indication: Follicular lymphoma
     Dosage: ON 11/NOV/2022, LAST DOSE WAS ADMINISTERED
     Route: 065
     Dates: start: 20220729
  3. OBINUTUZUMAB [Suspect]
     Active Substance: OBINUTUZUMAB
     Indication: Follicular lymphoma
     Dosage: ON 11/NOV/2022, LAST DOSE WAS ADMINISTERED
     Route: 042
     Dates: start: 20220729
  4. PREDNISONE [Suspect]
     Active Substance: PREDNISONE
     Indication: Follicular lymphoma
     Dosage: ON 11/NOV/2022, LAST DOSE WAS ADMINISTERED
     Route: 065
     Dates: start: 20220729
  5. CYCLOPHOSPHAMIDE [Suspect]
     Active Substance: CYCLOPHOSPHAMIDE
     Indication: Follicular lymphoma
     Dosage: UNKON 11/NOV/2022, LAST DOSE WAS ADMINISTERED; ;
     Route: 065
     Dates: start: 20220729
  6. ACYCLOVIR SODIUM [Concomitant]
     Active Substance: ACYCLOVIR SODIUM
     Dosage: 400 MG, 2X/DAY
     Route: 048
     Dates: start: 20220729
  7. CLARITHROMYCIN [Concomitant]
     Active Substance: CLARITHROMYCIN
     Indication: Lower respiratory tract infection
     Dosage: 500 MG, 2X/DAY
     Route: 048
     Dates: start: 20221212
  8. COTRIMOXAZOLE [Concomitant]
     Active Substance: SULFAMETHOXAZOLE\TRIMETHOPRIM
     Indication: Antifungal prophylaxis
     Dosage: 960 MG, 2X/DAY
     Route: 048
     Dates: start: 20220801
  9. IPRATROPIUM [Concomitant]
     Active Substance: IPRATROPIUM
     Indication: Lower respiratory tract infection
     Dosage: 500 MCI
     Route: 065
     Dates: start: 20221211
  10. MEROPENEM [Concomitant]
     Active Substance: MEROPENEM
     Indication: Lower respiratory tract infection
     Dosage: 1 G
     Route: 042
     Dates: start: 20221211, end: 20221211
  11. NYSTATIN [Concomitant]
     Active Substance: NYSTATIN
     Indication: Oral candidiasis
     Dosage: 1 ML
     Route: 048
     Dates: start: 20221212
  12. ACETAMINOPHEN [Concomitant]
     Active Substance: ACETAMINOPHEN
     Indication: Pyrexia
     Dosage: 1 G
     Route: 048
     Dates: start: 20221210
  13. ALBUTEROL [Concomitant]
     Active Substance: ALBUTEROL
     Indication: Lower respiratory tract infection
     Dosage: 5 MG
     Route: 065
     Dates: start: 20221211
  14. PIPERACILLIN SODIUM\TAZOBACTAM SODIUM [Concomitant]
     Active Substance: PIPERACILLIN SODIUM\TAZOBACTAM SODIUM
     Indication: Lower respiratory tract infection
     Dosage: 4.5 G, 3X/DAY
     Route: 042
     Dates: start: 20221211

REACTIONS (2)
  - Influenza [Recovered/Resolved]
  - Oral candidiasis [Unknown]

NARRATIVE: CASE EVENT DATE: 20221208
